FAERS Safety Report 11619706 (Version 1)
Quarter: 2015Q4

REPORT INFORMATION
  Report Type: Spontaneous
  Country: US (occurrence: US)
  Receive Date: 20151012
  Receipt Date: 20151012
  Transmission Date: 20160304
  Serious: No
  Sender: FDA-Public Use
  Company Number: US-BAYER-2015-441398

PATIENT
  Age: 81 Year
  Sex: Female
  Weight: 61.22 kg

DRUGS (4)
  1. CLARITIN [Suspect]
     Active Substance: LORATADINE
     Indication: EYE PRURITUS
  2. CLARITIN [Suspect]
     Active Substance: LORATADINE
     Indication: PARANASAL SINUS HYPERSECRETION
     Dosage: 1 DF, QD
     Route: 048
     Dates: start: 20151006, end: 20151008
  3. LOSARTAN. [Concomitant]
     Active Substance: LOSARTAN
  4. PRAVACHOL [Concomitant]
     Active Substance: PRAVASTATIN SODIUM

REACTIONS (4)
  - Dry mouth [Not Recovered/Not Resolved]
  - Lip dry [Unknown]
  - Product use issue [Not Recovered/Not Resolved]
  - Dry throat [Not Recovered/Not Resolved]

NARRATIVE: CASE EVENT DATE: 20151006
